FAERS Safety Report 7793585-9 (Version None)
Quarter: 2011Q4

REPORT INFORMATION
  Report Type: 
  Country: None (occurrence: None)
  Receive Date: 20111003
  Receipt Date: 20110927
  Transmission Date: 20120403
  Serious: Yes (Other)
  Sender: FDA-Public Use
  Company Number: JP-PFIZER INC-2011191112

PATIENT
  Age: 40 Year
  Sex: Female
  Weight: 47 kg

DRUGS (7)
  1. LYRICA [Suspect]
     Dosage: 150 MG, 1X/DAY
     Route: 048
     Dates: start: 20101228, end: 20110104
  2. TEGRETOL [Concomitant]
     Indication: PAIN
     Dosage: 200 MG, 1X/DAY
     Route: 048
     Dates: start: 20101209
  3. CLONAZEPAM [Concomitant]
     Indication: PAIN
     Dosage: 1 MG, 1X/DAY
     Route: 048
     Dates: start: 20101209
  4. LYRICA [Suspect]
     Indication: PROCEDURAL PAIN
     Dosage: 300 MG/DAY
     Route: 048
     Dates: start: 20100101, end: 20101220
  5. LYRICA [Suspect]
     Dosage: 75 MG, 1X/DAY
     Route: 048
     Dates: start: 20101221, end: 20101227
  6. DORAL [Concomitant]
     Indication: INSOMNIA
     Dosage: 30 MG, 1X/DAY
     Route: 048
     Dates: start: 20101209
  7. CYMBALTA [Concomitant]
     Indication: PAIN
     Dosage: 40 MG, 1X/DAY
     Route: 048
     Dates: start: 20101209

REACTIONS (3)
  - FALL [None]
  - DIPLOPIA [None]
  - LOSS OF CONSCIOUSNESS [None]
